FAERS Safety Report 7517950-X (Version None)
Quarter: 2011Q2

REPORT INFORMATION
  Report Type: 
  Country: None (occurrence: None)
  Receive Date: 20110527
  Receipt Date: 20110527
  Transmission Date: 20111010
  Serious: Yes (Other)
  Sender: FDA-Public Use
  Company Number: None

PATIENT
  Age: 51 Year
  Sex: Male

DRUGS (4)
  1. VARDENAFIL HYDROCHLORIDE (LEVITRA) [Concomitant]
  2. REVLIMID [Suspect]
     Indication: MULTIPLE MYELOMA
     Dosage: REVLIMID 10MG DAILY ORALLY
     Route: 048
     Dates: start: 20101101, end: 20110101
  3. ACYCLOVIR [Concomitant]
  4. PREGABALIN [Concomitant]

REACTIONS (1)
  - GYNAECOMASTIA [None]
